FAERS Safety Report 17156931 (Version 1)
Quarter: 2019Q4

REPORT INFORMATION
  Report Type: Spontaneous
  Country: FR (occurrence: FR)
  Receive Date: 20191216
  Receipt Date: 20191216
  Transmission Date: 20200122
  Serious: Yes (Hospitalization)
  Sender: FDA-Public Use
  Company Number: FR-TEVA-2019-FR-1151059

PATIENT
  Age: 2 Year
  Sex: Female
  Weight: 16.3 kg

DRUGS (7)
  1. SECTRAL 40 MG/ML, SOLUTION BUVABLE EN FLACON [Concomitant]
     Dosage: 100 MG
     Route: 048
     Dates: end: 20191104
  2. ACLOTINE [Concomitant]
     Active Substance: ANTITHROMBIN III HUMAN
     Indication: ACQUIRED ANTITHROMBIN III DEFICIENCY
     Dosage: 500 IU
     Route: 042
     Dates: start: 20191018, end: 20191018
  3. BACTRIM [Concomitant]
     Active Substance: SULFAMETHOXAZOLE\TRIMETHOPRIM
     Indication: ANTIBIOTIC PROPHYLAXIS
     Dosage: 1200 MG
     Route: 048
  4. METHOTREXATE. [Suspect]
     Active Substance: METHOTREXATE
     Indication: ACUTE LYMPHOCYTIC LEUKAEMIA
     Dosage: 16 MG
     Route: 048
     Dates: start: 20191014
  5. VINCRISTINE (SULFATE DE) [Suspect]
     Active Substance: VINCRISTINE SULFATE
     Indication: ACUTE LYMPHOCYTIC LEUKAEMIA
     Dosage: 0.95 MG
     Route: 042
     Dates: start: 20191014, end: 20191014
  6. XALUPRINE 20 MG/ML, SUSPENSION ORALE [Suspect]
     Active Substance: MERCAPTOPURINE
     Indication: ACUTE LYMPHOCYTIC LEUKAEMIA
     Dosage: 31 MG
     Route: 048
     Dates: start: 20191007
  7. ASPARAGINASE [Suspect]
     Active Substance: ASPARAGINASE
     Indication: ACUTE LYMPHOCYTIC LEUKAEMIA
     Dosage: 1550 IU
     Route: 042
     Dates: start: 20191014, end: 20191014

REACTIONS (4)
  - Neutropenia [Not Recovered/Not Resolved]
  - Thrombocytopenia [Recovered/Resolved]
  - Arthritis bacterial [Recovered/Resolved]
  - Anaemia [Not Recovered/Not Resolved]

NARRATIVE: CASE EVENT DATE: 20191018
